FAERS Safety Report 24163710 (Version 1)
Quarter: 2024Q3

REPORT INFORMATION
  Report Type: Spontaneous
  Country: US (occurrence: None)
  Receive Date: 20240801
  Receipt Date: 20240801
  Transmission Date: 20241017
  Serious: Yes (Hospitalization, Other)
  Sender: Public
  Company Number: None

PATIENT
  Age: 18 Year
  Sex: Male
  Weight: 63 kg

DRUGS (3)
  1. ABSORICA [Suspect]
     Active Substance: ISOTRETINOIN
     Indication: Acne
     Route: 048
     Dates: start: 20190903, end: 20200103
  2. ZOLOFT [Concomitant]
     Active Substance: SERTRALINE HYDROCHLORIDE
  3. OTHER SSRI^S [Concomitant]

REACTIONS (20)
  - Depression [None]
  - Psychotic disorder [None]
  - Suicidal ideation [None]
  - Dry skin [None]
  - Arthralgia [None]
  - Bone pain [None]
  - Eye inflammation [None]
  - Dry eye [None]
  - Eye irritation [None]
  - Ocular hyperaemia [None]
  - Eye pruritus [None]
  - Keratoconus [None]
  - Mobility decreased [None]
  - Cheilitis [None]
  - Chapped lips [None]
  - Lip erythema [None]
  - Lip pain [None]
  - Oral discomfort [None]
  - Abdominal pain [None]
  - Loss of personal independence in daily activities [None]

NARRATIVE: CASE EVENT DATE: 20210806
